FAERS Safety Report 19488447 (Version 2)
Quarter: 2025Q3

REPORT INFORMATION
  Report Type: Report from Study
  Country: US (occurrence: US)
  Receive Date: 20210702
  Receipt Date: 20250729
  Transmission Date: 20251021
  Serious: Yes (Hospitalization, Other)
  Sender: TAKEDA
  Company Number: US-TAKEDA-US201942156

PATIENT
  Age: 29 Year
  Sex: Male

DRUGS (2)
  1. RECOMBINATE [Suspect]
     Active Substance: ANTIHEMOPHILIC FACTOR, HUMAN RECOMBINANT
     Indication: Product used for unknown indication
  2. RECOMBINATE [Suspect]
     Active Substance: ANTIHEMOPHILIC FACTOR, HUMAN RECOMBINANT

REACTIONS (4)
  - Haemarthrosis [Recovered/Resolved]
  - Oesophageal ulcer [Unknown]
  - Oesophageal ulcer haemorrhage [Unknown]
  - Ankle deformity [Recovered/Resolved]

NARRATIVE: CASE EVENT DATE: 20191116
